FAERS Safety Report 16277295 (Version 1)
Quarter: 2019Q2

REPORT INFORMATION
  Report Type: Spontaneous
  Country: US (occurrence: US)
  Receive Date: 20190506
  Receipt Date: 20190506
  Transmission Date: 20190711
  Serious: Yes (Other)
  Sender: FDA-Public Use
  Company Number: None

PATIENT
  Age: 58 Year
  Sex: Female

DRUGS (9)
  1. TAFINLAR [Suspect]
     Active Substance: DABRAFENIB MESYLATE
     Indication: MALIGNANT MELANOMA
     Route: 048
     Dates: start: 20170831
  2. VITAMIN B12 [Concomitant]
     Active Substance: CYANOCOBALAMIN
  3. ADVIL [Concomitant]
     Active Substance: IBUPROFEN
  4. CURCUMIN [Concomitant]
     Active Substance: CURCUMIN
  5. ZYLET [Concomitant]
     Active Substance: LOTEPREDNOL ETABONATE\TOBRAMYCIN
  6. PREDNISOLONE. [Concomitant]
     Active Substance: PREDNISOLONE
  7. MEKINIST [Suspect]
     Active Substance: TRAMETINIB DIMETHYL SULFOXIDE
     Indication: MALIGNANT MELANOMA
     Route: 048
     Dates: start: 20170831
  8. ALEVE [Concomitant]
     Active Substance: NAPROXEN SODIUM
  9. THEANNE [Concomitant]

REACTIONS (2)
  - Blindness unilateral [None]
  - Therapy cessation [None]

NARRATIVE: CASE EVENT DATE: 20190430
